FAERS Safety Report 9104939 (Version 1)
Quarter: 2013Q1

REPORT INFORMATION
  Report Type: Spontaneous
  Country: ES (occurrence: ES)
  Receive Date: 20130220
  Receipt Date: 20130220
  Transmission Date: 20140127
  Serious: Yes (Other)
  Sender: FDA-Public Use
  Company Number: ES-PFIZER INC-2013062314

PATIENT
  Age: 57 Year
  Sex: Female

DRUGS (6)
  1. ZYVOXID [Suspect]
     Indication: FEBRILE NEUTROPENIA
     Dosage: 600 MG, 2X/DAY
     Route: 042
     Dates: start: 20120621, end: 20120703
  2. MEROPENEM [Suspect]
     Indication: FEBRILE NEUTROPENIA
     Dosage: 1 G, 3X/DAY
     Route: 042
     Dates: start: 20120619, end: 20120703
  3. AMBISOME [Suspect]
     Indication: FEBRILE NEUTROPENIA
     Dosage: 250 MG, 1X/DAY
     Route: 042
     Dates: start: 20120621, end: 20120703
  4. SOLTRIM [Suspect]
     Indication: FEBRILE NEUTROPENIA
     Dosage: 1 DF, 2X/DAY
     Route: 042
     Dates: start: 20120621, end: 20120703
  5. LEVOFLOXACIN [Concomitant]
     Indication: FEBRILE NEUTROPENIA
     Dosage: 500 MG, 1X/DAY
     Route: 042
     Dates: start: 20120618, end: 20120620
  6. TAZOCEL [Concomitant]
     Indication: FEBRILE NEUTROPENIA
     Dosage: 6 G, 3X/DAY
     Route: 042
     Dates: start: 20120618, end: 20120620

REACTIONS (1)
  - Hypokalaemia [Recovered/Resolved]
